FAERS Safety Report 25325641 (Version 1)
Quarter: 2025Q2

REPORT INFORMATION
  Report Type: Spontaneous
  Country: FR (occurrence: FR)
  Receive Date: 20250516
  Receipt Date: 20250516
  Transmission Date: 20250717
  Serious: Yes (Other)
  Sender: MYLAN
  Company Number: None

PATIENT
  Age: 65 Year
  Sex: Male
  Weight: 53.3 kg

DRUGS (16)
  1. NITROGLYCERIN [Suspect]
     Active Substance: NITROGLYCERIN
     Indication: Coronary artery disease
     Dates: start: 20250226, end: 20250415
  2. NITROGLYCERIN [Suspect]
     Active Substance: NITROGLYCERIN
     Route: 062
     Dates: start: 20250226, end: 20250415
  3. NITROGLYCERIN [Suspect]
     Active Substance: NITROGLYCERIN
     Route: 062
     Dates: start: 20250226, end: 20250415
  4. NITROGLYCERIN [Suspect]
     Active Substance: NITROGLYCERIN
     Dates: start: 20250226, end: 20250415
  5. FLUCONAZOLE [Suspect]
     Active Substance: FLUCONAZOLE
     Indication: Infection
     Dates: start: 20250214, end: 20250415
  6. FLUCONAZOLE [Suspect]
     Active Substance: FLUCONAZOLE
     Route: 048
     Dates: start: 20250214, end: 20250415
  7. FLUCONAZOLE [Suspect]
     Active Substance: FLUCONAZOLE
     Route: 048
     Dates: start: 20250214, end: 20250415
  8. FLUCONAZOLE [Suspect]
     Active Substance: FLUCONAZOLE
     Dates: start: 20250214, end: 20250415
  9. CEFOTAXIME [Suspect]
     Active Substance: CEFOTAXIME SODIUM
     Indication: Infection
     Dates: start: 20250207, end: 20250412
  10. CEFOTAXIME [Suspect]
     Active Substance: CEFOTAXIME SODIUM
     Route: 042
     Dates: start: 20250207, end: 20250412
  11. CEFOTAXIME [Suspect]
     Active Substance: CEFOTAXIME SODIUM
     Route: 042
     Dates: start: 20250207, end: 20250412
  12. CEFOTAXIME [Suspect]
     Active Substance: CEFOTAXIME SODIUM
     Dates: start: 20250207, end: 20250412
  13. ENOXAPARIN SODIUM [Suspect]
     Active Substance: ENOXAPARIN SODIUM
     Indication: Prophylaxis
     Dates: start: 20250306, end: 20250415
  14. ENOXAPARIN SODIUM [Suspect]
     Active Substance: ENOXAPARIN SODIUM
     Route: 065
     Dates: start: 20250306, end: 20250415
  15. ENOXAPARIN SODIUM [Suspect]
     Active Substance: ENOXAPARIN SODIUM
     Route: 065
     Dates: start: 20250306, end: 20250415
  16. ENOXAPARIN SODIUM [Suspect]
     Active Substance: ENOXAPARIN SODIUM
     Dates: start: 20250306, end: 20250415

REACTIONS (1)
  - Hepatitis acute [Not Recovered/Not Resolved]

NARRATIVE: CASE EVENT DATE: 20250415
